FAERS Safety Report 5834605-8 (Version None)
Quarter: 2008Q3

REPORT INFORMATION
  Report Type: 
  Country: None (occurrence: None)
  Receive Date: 20080801
  Receipt Date: 20080728
  Transmission Date: 20090109
  Serious: Yes (Disabling, Other)
  Sender: FDA-Public Use
  Company Number: 2008SP013801

PATIENT
  Age: 51 Year
  Sex: Female

DRUGS (2)
  1. PEG-INTRON [Suspect]
     Indication: HEPATITIS C
     Dates: start: 20080602
  2. REBETOL [Concomitant]
     Indication: HEPATITIS C
     Dosage: ;PO
     Route: 048
     Dates: start: 20080602

REACTIONS (9)
  - ANGER [None]
  - ASTHENIA [None]
  - BLOOD PRESSURE INCREASED [None]
  - CONFUSIONAL STATE [None]
  - FEELING ABNORMAL [None]
  - MEMORY IMPAIRMENT [None]
  - MYALGIA [None]
  - PALLOR [None]
  - SOMNOLENCE [None]
